FAERS Safety Report 8574341-0 (Version None)
Quarter: 2012Q3

REPORT INFORMATION
  Report Type: 
  Country: None (occurrence: None)
  Receive Date: 20120806
  Receipt Date: 20120731
  Transmission Date: 20120928
  Serious: Yes (Hospitalization)
  Sender: FDA-Public Use
  Company Number: US-ALLERGAN-1208690US

PATIENT
  Age: 70 Year
  Sex: Male
  Weight: 62.585 kg

DRUGS (2)
  1. BOTULINUM TOXIN TYPE A [Suspect]
     Indication: MUSCLE SPASTICITY
     Dosage: 800 UNITS, SINGLE
     Dates: start: 20100204, end: 20100204
  2. BOTULINUM TOXIN TYPE A [Suspect]
     Dosage: UNK
     Dates: start: 20081030, end: 20081030

REACTIONS (2)
  - INTESTINAL OBSTRUCTION [None]
  - DYSPHAGIA [None]
